FAERS Safety Report 26051168 (Version 1)
Quarter: 2025Q4

REPORT INFORMATION
  Report Type: Spontaneous
  Country: CN (occurrence: CN)
  Receive Date: 20251117
  Receipt Date: 20251117
  Transmission Date: 20260118
  Serious: Yes (Hospitalization)
  Sender: ABBVIE
  Company Number: CN-ABBVIE-6543737

PATIENT
  Age: 83 Year
  Sex: Male
  Weight: 83 kg

DRUGS (2)
  1. VENETOCLAX [Suspect]
     Active Substance: VENETOCLAX
     Indication: Acute myeloid leukaemia
     Dosage: DAY1-21
     Route: 048
     Dates: start: 20250917, end: 20251007
  2. AZACITIDINE [Suspect]
     Active Substance: AZACITIDINE
     Indication: Acute myeloid leukaemia
     Dosage: 100 MILLIGRAM. DAY1-7
     Route: 058
     Dates: start: 20250917, end: 20250923

REACTIONS (5)
  - Myelosuppression [Recovering/Resolving]
  - Mouth haemorrhage [Recovering/Resolving]
  - Oral blood blister [Unknown]
  - Scab [Unknown]
  - Epistaxis [Recovering/Resolving]

NARRATIVE: CASE EVENT DATE: 20250101
